FAERS Safety Report 8560330-9 (Version None)
Quarter: 2012Q3

REPORT INFORMATION
  Report Type: 
  Country: None (occurrence: None)
  Receive Date: 20120802
  Receipt Date: 20120720
  Transmission Date: 20120928
  Serious: Yes (Other)
  Sender: FDA-Public Use
  Company Number: DE-ELI_LILLY_AND_COMPANY-DE201206007163

PATIENT
  Age: 68 Year
  Sex: Male

DRUGS (4)
  1. LEVODOPA [Concomitant]
     Dosage: 1 DF, UNKNOWN
  2. OLANZAPINE [Suspect]
     Indication: SCHIZOPHRENIA
     Dosage: 405 MG, UNKNOWN
     Route: 030
  3. CLOMIPRAMINE HCL [Concomitant]
     Dosage: 1 DF, UNKNOWN
  4. CARVEDILOL [Concomitant]
     Indication: HYPERTENSION
     Dosage: 12.5 MG, UNKNOWN

REACTIONS (9)
  - HYPOTENSION [None]
  - DYSARTHRIA [None]
  - DRUG LEVEL ABOVE THERAPEUTIC [None]
  - FEELING ABNORMAL [None]
  - FATIGUE [None]
  - DIZZINESS [None]
  - CONFUSIONAL STATE [None]
  - SEDATION [None]
  - ASTHENIA [None]
